FAERS Safety Report 18111399 (Version 1)
Quarter: 2020Q3

REPORT INFORMATION
  Report Type: Spontaneous
  Country: US (occurrence: US)
  Receive Date: 20200805
  Receipt Date: 20200805
  Transmission Date: 20201103
  Serious: No
  Sender: FDA-Public Use
  Company Number: US-BION-008667

PATIENT
  Age: 76 Year
  Sex: Female

DRUGS (8)
  1. AMILORIDE [Concomitant]
     Active Substance: AMILORIDE
  2. FUROSEMIDE. [Concomitant]
     Active Substance: FUROSEMIDE
  3. SIMVASTATIN. [Concomitant]
     Active Substance: SIMVASTATIN
  4. BIONPHARMA^S DOFETILIDE 250 MCG [Suspect]
     Active Substance: DOFETILIDE
     Indication: HEART RATE IRREGULAR
     Dosage: STRENGTH: 250 MCG
  5. VALSARTAN. [Concomitant]
     Active Substance: VALSARTAN
  6. METFORMIN [Concomitant]
     Active Substance: METFORMIN HYDROCHLORIDE
  7. JANUVIA [Concomitant]
     Active Substance: SITAGLIPTIN PHOSPHATE
  8. XARELTO [Concomitant]
     Active Substance: RIVAROXABAN

REACTIONS (1)
  - Drug ineffective [Not Recovered/Not Resolved]
